FAERS Safety Report 21374493 (Version 2)
Quarter: 2022Q3

REPORT INFORMATION
  Report Type: Report from Study
  Country: TH (occurrence: TH)
  Receive Date: 20220926
  Receipt Date: 20220930
  Transmission Date: 20221027
  Serious: Yes (Death)
  Sender: FDA-Public Use
  Company Number: TH-NOVARTISPH-NVSC2022TH181082

PATIENT
  Sex: Male

DRUGS (1)
  1. ENTRESTO [Suspect]
     Active Substance: SACUBITRIL\VALSARTAN
     Indication: Cardiac failure
     Dosage: 0.5 DOSAGE FORM, QD (50 MG HALF TABLET)
     Route: 048

REACTIONS (4)
  - Death [Fatal]
  - Wrong technique in product usage process [Unknown]
  - Prescribed underdose [Unknown]
  - Off label use [Unknown]
